FAERS Safety Report 16378238 (Version 1)
Quarter: 2019Q2

REPORT INFORMATION
  Report Type: Report from Study
  Country: ZA (occurrence: ZA)
  Receive Date: 20190531
  Receipt Date: 20190531
  Transmission Date: 20190711
  Serious: Yes (Hospitalization, Other)
  Sender: FDA-Public Use
  Company Number: ZA-SA-2019SA146477

PATIENT
  Age: 63 Year
  Sex: Female

DRUGS (6)
  1. INSULIN GLULISINE [Suspect]
     Active Substance: INSULIN GLULISINE
     Dosage: 6 U TID, 4 U QD
     Dates: start: 20190419
  2. LYRICA [Concomitant]
     Active Substance: PREGABALIN
     Dosage: 150 MG, HS
     Dates: start: 20190101
  3. PHENERGAN [Concomitant]
     Active Substance: PROMETHAZINE HYDROCHLORIDE
     Dosage: 25 MG, HS
     Dates: start: 20170314
  4. TOPZOLE [Concomitant]
     Active Substance: PANTOPRAZOLE SODIUM
     Dosage: 20 MG, QD (BEFORE BREAKDAST)
     Dates: start: 20140612
  5. TOUJEO [Suspect]
     Active Substance: INSULIN GLARGINE
     Dosage: BED TIME-22 U, HS
     Route: 065
     Dates: start: 20190415
  6. POLYGAM [Concomitant]
     Active Substance: HUMAN IMMUNOGLOBULIN G
     Dosage: UNK
     Dates: start: 20171208

REACTIONS (3)
  - Unevaluable event [Not Recovered/Not Resolved]
  - Pneumonia [Not Recovered/Not Resolved]
  - Malaise [Not Recovered/Not Resolved]
